FAERS Safety Report 23888453 (Version 1)
Quarter: 2024Q2

REPORT INFORMATION
  Report Type: Spontaneous
  Country: US (occurrence: None)
  Receive Date: 20240522
  Receipt Date: 20240522
  Transmission Date: 20240715
  Serious: Yes (Hospitalization)
  Sender: FDA-Public Use
  Company Number: None

PATIENT
  Age: 71 Year
  Sex: Male
  Weight: 95.85 kg

DRUGS (1)
  1. ABIRATERONE [Suspect]
     Active Substance: ABIRATERONE
     Indication: Prostate cancer
     Dosage: FREQUENCY : DAILY;?
     Route: 048
     Dates: start: 20221102

REACTIONS (6)
  - Gait disturbance [None]
  - Muscular weakness [None]
  - Cerebrovascular accident [None]
  - Urinary tract infection [None]
  - Electrolyte imbalance [None]
  - Cerebrovascular accident [None]

NARRATIVE: CASE EVENT DATE: 20240520
